FAERS Safety Report 19205282 (Version 1)
Quarter: 2021Q2

REPORT INFORMATION
  Report Type: Spontaneous
  Country: US (occurrence: US)
  Receive Date: 20210430
  Receipt Date: 20210430
  Transmission Date: 20210717
  Serious: No
  Sender: FDA-Public Use
  Company Number: None

PATIENT
  Sex: Female

DRUGS (1)
  1. C TADALAFIL SUSP ++ 5MG/ML CIPLA USA [Suspect]
     Active Substance: TADALAFIL
     Indication: PULMONARY HYPERTENSION
     Dosage: ?          OTHER ROUTE:G?TUBE?
     Dates: start: 202103

REACTIONS (2)
  - Diarrhoea [None]
  - Dermatitis diaper [None]
